FAERS Safety Report 4497118-4 (Version None)
Quarter: 2004Q3

REPORT INFORMATION
  Report Type: 
  Country: None (occurrence: None)
  Receive Date: 20040927
  Receipt Date: 20040525
  Transmission Date: 20050211
  Serious: No
  Sender: FDA-Public Use
  Company Number: USA040568578

PATIENT
  Age: 34 Year
  Sex: Female
  Weight: 84 kg

DRUGS (2)
  1. STRATTERA [Suspect]
     Indication: DISTURBANCE IN ATTENTION
     Dosage: 40 MG IN THE EVENING
     Dates: start: 20040524
  2. LAMICTAL [Concomitant]

REACTIONS (4)
  - DECREASED APPETITE [None]
  - MIDDLE INSOMNIA [None]
  - MUSCLE CRAMP [None]
  - PSYCHOMOTOR HYPERACTIVITY [None]
